FAERS Safety Report 6053650-3 (Version None)
Quarter: 2009Q1

REPORT INFORMATION
  Report Type: 
  Country: None (occurrence: None)
  Receive Date: 20090127
  Receipt Date: 20080108
  Transmission Date: 20090719
  Serious: No
  Sender: FDA-Public Use
  Company Number: US-TEVA-166128USA

PATIENT
  Sex: Female

DRUGS (2)
  1. COPAXONE [Suspect]
     Indication: MULTIPLE SCLEROSIS
     Route: 058
     Dates: start: 20050101
  2. MODAFINIL [Suspect]
     Indication: SOMNOLENCE
     Route: 048
     Dates: start: 20071101

REACTIONS (1)
  - SOMNOLENCE [None]
